FAERS Safety Report 6912125-7 (Version None)
Quarter: 2010Q3

REPORT INFORMATION
  Report Type: 
  Country: None (occurrence: None)
  Receive Date: 20100806
  Receipt Date: 20080110
  Transmission Date: 20110219
  Serious: Yes (Other)
  Sender: FDA-Public Use
  Company Number: US-PFIZER INC-2007093519

PATIENT
  Sex: Male
  Weight: 26 kg

DRUGS (14)
  1. VFEND [Suspect]
     Indication: SCEDOSPORIUM INFECTION
     Route: 042
     Dates: start: 20060925, end: 20061211
  2. VFEND [Suspect]
     Route: 042
     Dates: start: 20061211, end: 20061220
  3. VFEND [Suspect]
     Route: 042
     Dates: start: 20061220, end: 20070130
  4. VFEND [Suspect]
     Indication: SCEDOSPORIUM INFECTION
     Route: 048
     Dates: start: 20060502, end: 20060522
  5. VFEND [Suspect]
     Route: 048
     Dates: start: 20060609, end: 20060914
  6. VFEND [Suspect]
     Route: 048
     Dates: start: 20070130, end: 20070225
  7. VFEND [Suspect]
     Route: 048
     Dates: start: 20070225, end: 20070327
  8. VFEND [Suspect]
     Route: 048
     Dates: start: 20070327, end: 20070331
  9. IMMUNE GLOBULIN (HUMAN) [Concomitant]
     Indication: HYPOGAMMAGLOBULINAEMIA
  10. HUMAN GROWTH HORMONE, RECOMBINANT [Concomitant]
  11. LEVOXYL [Concomitant]
  12. IRON [Concomitant]
  13. ALBUTEROL [Concomitant]
     Route: 055
  14. AMOXICILLIN [Concomitant]
     Indication: PROPHYLAXIS

REACTIONS (4)
  - BIOPSY LIVER ABNORMAL [None]
  - HEPATIC ENZYME INCREASED [None]
  - HEPATITIS [None]
  - ULTRASOUND SCAN ABNORMAL [None]
